FAERS Safety Report 10684837 (Version 1)
Quarter: 2014Q4

REPORT INFORMATION
  Report Type: Spontaneous
  Country: FR (occurrence: FR)
  Receive Date: 20141231
  Receipt Date: 20141231
  Transmission Date: 20150529
  Serious: Yes (Hospitalization)
  Sender: FDA-Public Use
  Company Number: US-ASTRAZENECA-2014SE99454

PATIENT
  Age: 82 Year
  Sex: Female

DRUGS (1)
  1. KENZEN [Suspect]
     Active Substance: CANDESARTAN
     Route: 048
     Dates: start: 20140504, end: 20140510

REACTIONS (1)
  - Fall [Recovered/Resolved]

NARRATIVE: CASE EVENT DATE: 201405
